FAERS Safety Report 18999756 (Version 1)
Quarter: 2021Q1

REPORT INFORMATION
  Report Type: Spontaneous
  Country: US (occurrence: US)
  Receive Date: 20210311
  Receipt Date: 20210311
  Transmission Date: 20210420
  Serious: Yes (Hospitalization, Other)
  Sender: FDA-Public Use
  Company Number: US-PFIZER INC-03H-163-0209795-00

PATIENT
  Age: 64 Year
  Sex: Male
  Weight: 95.5 kg

DRUGS (5)
  1. DROPERIDOL. [Concomitant]
     Active Substance: DROPERIDOL
     Dosage: FREQ: NOT REPORTED
     Route: 030
     Dates: start: 19850701
  2. FENTANYL. [Concomitant]
     Active Substance: FENTANYL
     Dosage: FREQ: NOT REPORTED
     Route: 030
     Dates: start: 19850701
  3. PENTOBARBITAL. [Concomitant]
     Active Substance: PENTOBARBITAL
     Dosage: FREQ: 1:200,000 WITH BUPIVACAINE
     Route: 030
     Dates: start: 19850701
  4. HYOSCINE [Concomitant]
     Active Substance: SCOPOLAMINE
     Dosage: FREQ: NOT REPORTED
     Route: 030
     Dates: start: 19850701
  5. BUPIVACAINE HYDROCHLORIDE/EPINEPHRINE [Suspect]
     Active Substance: BUPIVACAINE HYDROCHLORIDE\EPINEPHRINE
     Indication: NERVE BLOCK
     Dosage: FREQ: 0.5%, 50ML WITH EPINEPHRINE
     Dates: start: 19850701

REACTIONS (1)
  - Seizure [Unknown]

NARRATIVE: CASE EVENT DATE: 19850701
